FAERS Safety Report 19405501 (Version 1)
Quarter: 2021Q2

REPORT INFORMATION
  Report Type: Spontaneous
  Country: DE (occurrence: DE)
  Receive Date: 20210611
  Receipt Date: 20210611
  Transmission Date: 20210717
  Serious: Yes (Hospitalization)
  Sender: FDA-Public Use
  Company Number: DE-TEVA-2021-DE-1919977

PATIENT
  Age: 79 Year
  Sex: Male

DRUGS (9)
  1. METFORMIN [Suspect]
     Active Substance: METFORMIN HYDROCHLORIDE
     Dosage: 2000 MILLIGRAM DAILY; 1?0?1?0
     Route: 048
  2. SIMVASTATIN. [Concomitant]
     Active Substance: SIMVASTATIN
     Dosage: 20 MILLIGRAM DAILY;  0?0?1?0
     Route: 048
  3. RAMIPRIL HCTAD 5MG/25MG [Concomitant]
     Dosage: 1 DOSAGE FORMS DAILY; 25|5 MG, 1?0?0?0
     Route: 048
  4. TRULICITY [Suspect]
     Active Substance: DULAGLUTIDE
     Dosage: 1X A WEEK, SOLUTION FOR INJECTION / INFUSION
     Route: 058
  5. INSULIN GLARGIN [Suspect]
     Active Substance: INSULIN GLARGINE
     Dosage: ACCORDING TO THE SCHEME, INJECTION / INFUSION SOLUTION
     Route: 058
  6. BISOPROLOL [Suspect]
     Active Substance: BISOPROLOL
     Dosage: 10 MILLIGRAM DAILY; 1?0?1?0
     Route: 048
  7. EDOXABAN [Concomitant]
     Active Substance: EDOXABAN TOSYLATE
     Dosage: 30 MILLIGRAM DAILY; 1?0?0?0
     Route: 048
  8. ACETYLSALICYLSAURE [Concomitant]
     Active Substance: ASPIRIN
     Dosage: 100 MILLIGRAM DAILY; 0?1?0?0
     Route: 048
  9. AMLODIPIN [Concomitant]
     Active Substance: AMLODIPINE BESYLATE
     Dosage: 10 MILLIGRAM DAILY; 1?0?0?0
     Route: 048

REACTIONS (2)
  - Acute respiratory failure [Unknown]
  - Somnolence [Unknown]
